FAERS Safety Report 18521382 (Version 2)
Quarter: 2021Q4

REPORT INFORMATION
  Report Type: Spontaneous
  Country: FR (occurrence: FR)
  Receive Date: 20201119
  Receipt Date: 20211117
  Transmission Date: 20220304
  Serious: Yes (Hospitalization, Other)
  Sender: FDA-Public Use
  Company Number: FR-AFSSAPS-MA20202221

PATIENT
  Age: 56 Year
  Sex: Male

DRUGS (1)
  1. CLOZAPINE [Suspect]
     Active Substance: CLOZAPINE
     Indication: Schizophrenia
     Dosage: 350 MILLIGRAM, ONCE A DAY
     Route: 048
     Dates: start: 201808

REACTIONS (2)
  - Congestive cardiomyopathy [Recovering/Resolving]
  - Ventricular dysfunction [Recovering/Resolving]

NARRATIVE: CASE EVENT DATE: 20200901
